FAERS Safety Report 9341692 (Version 1)
Quarter: 2013Q2

REPORT INFORMATION
  Report Type: Spontaneous
  Country: US (occurrence: US)
  Receive Date: 20130611
  Receipt Date: 20130611
  Transmission Date: 20140414
  Serious: No
  Sender: FDA-Public Use
  Company Number: US-PFIZER INC-2013175488

PATIENT
  Age: 58 Year
  Sex: Female
  Weight: 80.27 kg

DRUGS (3)
  1. CHANTIX [Suspect]
     Indication: SMOKING CESSATION THERAPY
     Dosage: UNK
     Dates: start: 2009
  2. CHANTIX [Suspect]
     Dosage: UNK, 2X/DAY
     Dates: start: 201305, end: 2013
  3. TOPAMAX [Concomitant]
     Indication: MIGRAINE
     Dosage: 50 MG, DAILY

REACTIONS (2)
  - Intentional drug misuse [Unknown]
  - Drug ineffective [Unknown]
